FAERS Safety Report 5371068-3 (Version None)
Quarter: 2007Q2

REPORT INFORMATION
  Report Type: 
  Country: None (occurrence: None)
  Receive Date: 20070626
  Receipt Date: 20070614
  Transmission Date: 20071010
  Serious: Yes (Hospitalization)
  Sender: FDA-Public Use
  Company Number: BR-PFIZER INC-2007049552

PATIENT
  Sex: Female

DRUGS (3)
  1. CHAMPIX [Suspect]
     Indication: TOBACCO USER
     Route: 048
  2. PROPRANOLOL [Concomitant]
  3. LIPITOR [Concomitant]
     Route: 048

REACTIONS (1)
  - EPIPLOIC APPENDAGITIS [None]
